FAERS Safety Report 8598094-5 (Version None)
Quarter: 2012Q3

REPORT INFORMATION
  Report Type: 
  Country: None (occurrence: None)
  Receive Date: 20120802
  Receipt Date: 20120723
  Transmission Date: 20120928
  Serious: Yes (Other)
  Sender: FDA-Public Use
  Company Number: 1207-393

PATIENT
  Age: 91 Year
  Sex: Male

DRUGS (6)
  1. FLUNISOLIDE 0.025% (FLUNISOLIDE) [Concomitant]
  2. LISINOPRIL [Concomitant]
  3. EYLEA [Suspect]
     Indication: AGE-RELATED MACULAR DEGENERATION
     Dosage: 2 MG, INTRAVITREAL
     Dates: start: 20120615, end: 20120615
  4. FINASTERIDE [Concomitant]
  5. TERAZOSIN HCL [Concomitant]
  6. SIMVASTATIN [Concomitant]

REACTIONS (1)
  - RETINAL HAEMORRHAGE [None]
